FAERS Safety Report 8878980 (Version 2)
Quarter: 2013Q1

REPORT INFORMATION
  Report Type: Report from Study
  Country: CA (occurrence: CA)
  Receive Date: 20121026
  Receipt Date: 20130215
  Transmission Date: 20140127
  Serious: Yes (Hospitalization, Other)
  Sender: FDA-Public Use
  Company Number: CA-ABBOTT-12P-028-0998088-00

PATIENT
  Sex: Female

DRUGS (1)
  1. HUMIRA [Suspect]
     Indication: CROHN^S DISEASE
     Route: 058
     Dates: start: 20101228

REACTIONS (4)
  - Intestinal obstruction [Unknown]
  - Intestinal obstruction [Unknown]
  - Abdominal wound dehiscence [Recovering/Resolving]
  - Weight decreased [Not Recovered/Not Resolved]
